FAERS Safety Report 6848062-6 (Version None)
Quarter: 2010Q3

REPORT INFORMATION
  Report Type: 
  Country: None (occurrence: None)
  Receive Date: 20100714
  Receipt Date: 20100630
  Transmission Date: 20110219
  Serious: Yes (Hospitalization)
  Sender: FDA-Public Use
  Company Number: KV201000215

PATIENT
  Age: 20 Year
  Sex: Female

DRUGS (1)
  1. EVAMIST [Suspect]
     Indication: OESTROGEN REPLACEMENT THERAPY

REACTIONS (5)
  - CYANOSIS [None]
  - DYSPNOEA [None]
  - EYELID PTOSIS [None]
  - MUSCULAR WEAKNESS [None]
  - MYASTHENIA GRAVIS CRISIS [None]
